FAERS Safety Report 5502517-5 (Version None)
Quarter: 2007Q4

REPORT INFORMATION
  Report Type: 
  Country: None (occurrence: None)
  Receive Date: 20071030
  Receipt Date: 20071008
  Transmission Date: 20080405
  Serious: No
  Sender: FDA-Public Use
  Company Number: US-BOEHRINGER INGELHEIM PHARMACEUTICALS, INC.-2007-BP-22349BP

PATIENT
  Age: 60 Year
  Sex: Female

DRUGS (3)
  1. SPIRIVA [Suspect]
     Indication: EMPHYSEMA
     Route: 055
     Dates: start: 20070801
  2. ADVAIR DISKUS 100/50 [Suspect]
  3. NOSE SPRAY [Concomitant]

REACTIONS (2)
  - DYSPHONIA [None]
  - THROAT LESION [None]
